FAERS Safety Report 11060430 (Version 2)
Quarter: 2015Q2

REPORT INFORMATION
  Report Type: Spontaneous
  Country: US (occurrence: US)
  Receive Date: 20150423
  Receipt Date: 20150501
  Transmission Date: 20150821
  Serious: Yes (Other)
  Sender: FDA-Public Use
  Company Number: US-BAUSCH-BL-2015-010823

PATIENT
  Age: 14 Year
  Sex: Male

DRUGS (9)
  1. INTUNIV [Concomitant]
     Active Substance: GUANFACINE HYDROCHLORIDE
     Indication: PRODUCT USED FOR UNKNOWN INDICATION
  2. ABILIFY [Suspect]
     Active Substance: ARIPIPRAZOLE
     Indication: PRODUCT USED FOR UNKNOWN INDICATION
     Route: 065
  3. XENAZINE [Suspect]
     Active Substance: TETRABENAZINE
     Dosage: THREE FOURTH TABLET DAILY
     Route: 048
     Dates: start: 20150318
  4. XENAZINE [Suspect]
     Active Substance: TETRABENAZINE
     Dosage: HALF OF A TABLET DAILY.
     Route: 048
     Dates: start: 20150318
  5. AMITRIPTYLINE [Concomitant]
     Active Substance: AMITRIPTYLINE
     Indication: PRODUCT USED FOR UNKNOWN INDICATION
  6. XENAZINE [Suspect]
     Active Substance: TETRABENAZINE
     Indication: TOURETTE^S DISORDER
     Dosage: QUARTER TABLET DAILY
     Route: 048
     Dates: start: 20150318
  7. XENAZINE [Suspect]
     Active Substance: TETRABENAZINE
     Dosage: HALF OF A TABLET DAILY
     Route: 048
     Dates: end: 20150414
  8. XENAZINE [Suspect]
     Active Substance: TETRABENAZINE
     Route: 048
     Dates: start: 20150318
  9. VYVANSE [Concomitant]
     Active Substance: LISDEXAMFETAMINE DIMESYLATE
     Indication: PRODUCT USED FOR UNKNOWN INDICATION

REACTIONS (9)
  - Fear [Recovered/Resolved]
  - Suicidal ideation [Recovered/Resolved]
  - Dystonia [Recovered/Resolved]
  - Feeling guilty [Recovered/Resolved]
  - Anger [Recovered/Resolved]
  - Intentional product use issue [Recovered/Resolved]
  - Drug administration error [Recovered/Resolved]
  - Abnormal behaviour [Recovered/Resolved]
  - Verbal abuse [Recovered/Resolved]

NARRATIVE: CASE EVENT DATE: 20150318
